FAERS Safety Report 20453813 (Version 1)
Quarter: 2022Q1

REPORT INFORMATION
  Report Type: Spontaneous
  Country: CN (occurrence: CN)
  Receive Date: 20220210
  Receipt Date: 20220210
  Transmission Date: 20220423
  Serious: Yes (Other)
  Sender: FDA-Public Use
  Company Number: CN-ABBVIE-22K-035-4272588-00

PATIENT
  Age: 16 Year
  Sex: Male
  Weight: 55 kg

DRUGS (1)
  1. VALPROATE SODIUM [Suspect]
     Active Substance: VALPROATE SODIUM
     Indication: Prophylaxis
     Route: 048
     Dates: start: 20190302, end: 20190415

REACTIONS (1)
  - White blood cell count decreased [Recovered/Resolved]

NARRATIVE: CASE EVENT DATE: 20190311
